FAERS Safety Report 8166600-0 (Version None)
Quarter: 2012Q1

REPORT INFORMATION
  Report Type: 
  Country: None (occurrence: None)
  Receive Date: 20120227
  Receipt Date: 20110609
  Transmission Date: 20120608
  Serious: No
  Sender: FDA-Public Use
  Company Number: US-MYLANLABS-2011S1010799

PATIENT
  Age: 18 Year
  Sex: Female
  Weight: 51.71 kg

DRUGS (4)
  1. CONTRACEPTIVES [Concomitant]
  2. AMNESTEEM [Suspect]
     Route: 048
     Dates: start: 20110301, end: 20110520
  3. AMNESTEEM [Suspect]
     Indication: ACNE
     Route: 048
     Dates: start: 20110301
  4. AMNESTEEM [Suspect]
     Indication: ACNE CYSTIC
     Route: 048
     Dates: start: 20110301, end: 20110520

REACTIONS (4)
  - HEADACHE [None]
  - RASH [None]
  - HAEMATOCHEZIA [None]
  - DRY MOUTH [None]
